FAERS Safety Report 4327190-3 (Version None)
Quarter: 2004Q1

REPORT INFORMATION
  Report Type: 
  Country: None (occurrence: None)
  Receive Date: 20040330
  Receipt Date: 20040322
  Transmission Date: 20041129
  Serious: Yes (Other)
  Sender: FDA-Public Use
  Company Number: PHNU2004DE01299

PATIENT
  Age: 83 Year
  Sex: Female

DRUGS (8)
  1. TEGRETOL [Suspect]
     Indication: MYOCLONIC EPILEPSY
     Dosage: 300MG/DAY
     Route: 048
     Dates: start: 20030601
  2. TEGRETOL [Suspect]
     Dosage: 200MG/DAY
     Route: 048
  3. TEGRETOL [Suspect]
     Dosage: 300MG/DAY
     Route: 048
  4. CONCOR [Concomitant]
  5. DIGITOXIN TAB [Concomitant]
  6. AMARYL [Concomitant]
  7. ASPIRIN [Concomitant]
  8. NEOTRI [Concomitant]

REACTIONS (4)
  - CONFUSIONAL STATE [None]
  - ENURESIS [None]
  - GAIT DISTURBANCE [None]
  - MYOCLONUS [None]
